FAERS Safety Report 5792393-8 (Version None)
Quarter: 2008Q2

REPORT INFORMATION
  Report Type: 
  Country: None (occurrence: None)
  Receive Date: 20080623
  Receipt Date: 20080610
  Transmission Date: 20081010
  Serious: Yes (Hospitalization)
  Sender: FDA-Public Use
  Company Number: 2008BI012571

PATIENT
  Age: 58 Year
  Sex: Female
  Weight: 125.6464 kg

DRUGS (19)
  1. TYSABRI [Suspect]
     Indication: MULTIPLE SCLEROSIS
     Dosage: 300 MG; QM; IV
     Route: 042
     Dates: start: 20070621, end: 20080414
  2. TIZANIDINE HCL [Concomitant]
  3. ACETAMINOPHEN AND HYDROCODONE BITARTRATE [Concomitant]
  4. AMOXICILLIN - POT [Concomitant]
  5. CLAVULANATE POTASSIUM [Concomitant]
  6. ALLOPURINOL [Concomitant]
  7. COZAAR [Concomitant]
  8. HUMULIN R 100 [Concomitant]
  9. HUMULIN N 100 [Concomitant]
  10. AMANTADINE HCL [Concomitant]
  11. ATENOLOL [Concomitant]
  12. FUROSEMIDE [Concomitant]
  13. ALBUTEROL SULFATE [Concomitant]
  14. SYNTHROID [Concomitant]
  15. POTASSIUM CHLORIDE [Concomitant]
  16. PROCHLORPERAZINE MALEATE [Concomitant]
  17. BACLOFEN [Concomitant]
  18. PRAVASTATIN SODIUM [Concomitant]
  19. NITROGLYCERIN [Concomitant]

REACTIONS (11)
  - ATRIOVENTRICULAR BLOCK FIRST DEGREE [None]
  - BRAIN NATRIURETIC PEPTIDE INCREASED [None]
  - DIABETIC NEPHROPATHY [None]
  - DYSPNOEA EXERTIONAL [None]
  - HAEMATOCRIT DECREASED [None]
  - HAEMOGLOBIN DECREASED [None]
  - OEDEMA PERIPHERAL [None]
  - RED BLOOD CELL COUNT DECREASED [None]
  - RENAL FAILURE ACUTE [None]
  - SINUS BRADYCARDIA [None]
  - TYPE 2 DIABETES MELLITUS [None]
